FAERS Safety Report 6535784-X (Version None)
Quarter: 2010Q1

REPORT INFORMATION
  Report Type: 
  Country: None (occurrence: None)
  Receive Date: 20100113
  Receipt Date: 20100111
  Transmission Date: 20100710
  Serious: Yes (Hospitalization)
  Sender: FDA-Public Use
  Company Number: US-GENENTECH-275537

PATIENT
  Sex: Male

DRUGS (6)
  1. XOLAIR [Suspect]
     Indication: ASTHMA
     Dosage: 375 MG, Q3W
     Route: 058
     Dates: start: 20070215, end: 20080923
  2. AVELOX [Suspect]
     Indication: SINUSITIS
     Dosage: 400 MG, QD
     Route: 048
     Dates: start: 20080923, end: 20080923
  3. ADVAIR DISKUS 100/50 [Concomitant]
     Indication: ASTHMA
     Dosage: 2 PUFF, BID
     Dates: start: 20060106
  4. SINGULAIR [Concomitant]
     Indication: ASTHMA
     Dosage: 10 MG, QD
     Route: 048
     Dates: start: 20010105
  5. PREDNISONE [Concomitant]
     Indication: SINUSITIS
     Dosage: UNK
     Route: 048
     Dates: start: 20080923, end: 20081008
  6. ANTIBIOTICS (NOT SPECIFIED) [Concomitant]
     Indication: DRUG USE FOR UNKNOWN INDICATION

REACTIONS (1)
  - ANAPHYLACTIC REACTION [None]
